FAERS Safety Report 19509426 (Version 1)
Quarter: 2021Q3

REPORT INFORMATION
  Report Type: Report from Study
  Country: None (occurrence: RO)
  Receive Date: 20210708
  Receipt Date: 20210708
  Transmission Date: 20211014
  Serious: Yes (Other)
  Sender: FDA-Public Use
  Company Number: RO-ABBVIE-21K-135-3978416-00

PATIENT
  Age: 60 Year
  Sex: Male

DRUGS (2)
  1. DUODOPA [Suspect]
     Active Substance: CARBIDOPA\LEVODOPA
     Indication: PARKINSON^S DISEASE
     Dosage: DM=7.00 DC=5.20 ED=3.30 NRED=2; DMN=0.00 DCN=0.00 EDN=0.00 NREDN=0
     Route: 050
     Dates: start: 20210528
  2. DUODOPA [Suspect]
     Active Substance: CARBIDOPA\LEVODOPA

REACTIONS (8)
  - Pleural thickening [Recovered/Resolved]
  - Asthma [Not Recovered/Not Resolved]
  - Dyspnoea [Recovered/Resolved]
  - Productive cough [Recovered/Resolved]
  - Emphysema [Recovered/Resolved]
  - Infective exacerbation of bronchiectasis [Recovered/Resolved]
  - Pulmonary fibrosis [Recovered/Resolved]
  - Sputum purulent [Recovered/Resolved]

NARRATIVE: CASE EVENT DATE: 20210615
